FAERS Safety Report 5534543-4 (Version None)
Quarter: 2007Q4

REPORT INFORMATION
  Report Type: 
  Country: None (occurrence: None)
  Receive Date: 20071205
  Receipt Date: 20071129
  Transmission Date: 20080405
  Serious: Yes (Other)
  Sender: FDA-Public Use
  Company Number: DE-GENENTECH-252029

PATIENT
  Sex: Male

DRUGS (1)
  1. RAPTIVA [Suspect]
     Indication: PSORIASIS
     Dosage: 1.3 ML, 1/WEEK
     Route: 058
     Dates: start: 20070308, end: 20070904

REACTIONS (3)
  - BLOOD BILIRUBIN INCREASED [None]
  - CHROMATURIA [None]
  - TRANSAMINASES INCREASED [None]
